FAERS Safety Report 25446843 (Version 1)
Quarter: 2025Q2

REPORT INFORMATION
  Report Type: Spontaneous
  Country: US (occurrence: US)
  Receive Date: 20250617
  Receipt Date: 20250617
  Transmission Date: 20250717
  Serious: No
  Sender: UCB
  Company Number: US-UCBSA-2025028783

PATIENT
  Sex: Male
  Weight: 104.13 kg

DRUGS (1)
  1. BIMZELX [Suspect]
     Active Substance: BIMEKIZUMAB-BKZX
     Indication: Ankylosing spondylitis
     Dosage: 320 MILLIGRAM, EV 4 WEEKS
     Route: 058
     Dates: start: 20250421

REACTIONS (2)
  - Anxiety [Unknown]
  - Insurance issue [Unknown]
